FAERS Safety Report 8835658 (Version 2)
Quarter: 2012Q4

REPORT INFORMATION
  Report Type: 
  Country: FR (occurrence: FR)
  Receive Date: 20121011
  Receipt Date: 20121023
  Transmission Date: 20130627
  Serious: Yes (Hospitalization)
  Sender: FDA-Public Use
  Company Number: FR-SANOFI-AVENTIS-2012SA072162

PATIENT
  Age: 77 Year
  Sex: Male
  Weight: 64 kg

DRUGS (3)
  1. JEVTANA [Suspect]
     Indication: PROSTATE CANCER
     Route: 042
     Dates: start: 201203, end: 201206
  2. UNSPECIFIED INGREDIENT [Suspect]
     Indication: PROSTATE CANCER
     Route: 048
     Dates: start: 20120618, end: 201207
  3. PREDNISOLONE [Concomitant]
     Indication: PROSTATE CANCER
     Dates: start: 20120618, end: 201207

REACTIONS (1)
  - Generalised oedema [Recovered/Resolved]
